FAERS Safety Report 12213275 (Version 1)
Quarter: 2016Q1

REPORT INFORMATION
  Report Type: Spontaneous
  Country: IT (occurrence: IT)
  Receive Date: 20160328
  Receipt Date: 20160328
  Transmission Date: 20160526
  Serious: Yes (Other)
  Sender: FDA-Public Use
  Company Number: PHHY2016IT039412

PATIENT
  Age: 69 Year
  Sex: Male

DRUGS (3)
  1. AFINITOR [Suspect]
     Active Substance: EVEROLIMUS
     Dosage: 10 MG, QD
     Route: 048
     Dates: start: 20150120, end: 20160205
  2. AFINITOR [Suspect]
     Active Substance: EVEROLIMUS
     Indication: NEUROENDOCRINE CARCINOMA
     Dosage: 5 MG, QD
     Route: 048
     Dates: start: 20150114
  3. ALLOPURINOL. [Suspect]
     Active Substance: ALLOPURINOL
     Indication: HYPERURICAEMIA
     Dosage: 300 MG, UNK
     Route: 065
     Dates: start: 20141016, end: 20160126

REACTIONS (7)
  - Rash [Recovering/Resolving]
  - Dermatitis [Unknown]
  - Erythema multiforme [Recovering/Resolving]
  - Peau d^orange [Recovering/Resolving]
  - Drug hypersensitivity [Unknown]
  - Platelet count decreased [Recovering/Resolving]
  - LE cells [Recovering/Resolving]

NARRATIVE: CASE EVENT DATE: 20150124
